FAERS Safety Report 9390265 (Version 1)
Quarter: 2013Q3

REPORT INFORMATION
  Report Type: Spontaneous
  Country: US (occurrence: US)
  Receive Date: 20130709
  Receipt Date: 20130709
  Transmission Date: 20140515
  Serious: Yes (Hospitalization)
  Sender: FDA-Public Use
  Company Number: US-PFIZER INC-2013199412

PATIENT
  Age: 47 Year
  Sex: Female

DRUGS (5)
  1. CITALOPRAM [Suspect]
     Indication: SCHIZOPHRENIA
     Dosage: 10 MG, 1X/DAY
  2. ONDANSETRON [Suspect]
     Indication: ANTIEMETIC SUPPORTIVE CARE
     Dosage: UNK
  3. METOCLOPRAMIDE HCL [Suspect]
     Indication: ANTIEMETIC SUPPORTIVE CARE
     Dosage: UNK
  4. CLOZAPINE [Suspect]
     Indication: SCHIZOPHRENIA
     Dosage: 100MG, NIGHTLY
  5. PROMETHAZINE HYDROCHLORIDE [Concomitant]
     Indication: ANTIEMETIC SUPPORTIVE CARE
     Dosage: UNK

REACTIONS (7)
  - Serotonin syndrome [Recovered/Resolved]
  - Withdrawal syndrome [Recovered/Resolved]
  - Clonus [Recovered/Resolved]
  - Agitation [Recovered/Resolved]
  - Salivary hypersecretion [Recovered/Resolved]
  - Muscle spasticity [Recovered/Resolved]
  - Hyperreflexia [Recovered/Resolved]
